FAERS Safety Report 23743081 (Version 1)
Quarter: 2024Q2

REPORT INFORMATION
  Report Type: Spontaneous
  Country: KR (occurrence: KR)
  Receive Date: 20240415
  Receipt Date: 20240415
  Transmission Date: 20240716
  Serious: Yes (Other)
  Sender: FDA-Public Use
  Company Number: KR-009507513-2404KOR004944

PATIENT
  Age: 41 Year
  Sex: Female

DRUGS (3)
  1. KEYTRUDA [Suspect]
     Active Substance: PEMBROLIZUMAB
     Dosage: 200 MILLIGRAM, DOSAGE INTERVAL: 1 DAY (QD); (FORMULATION: VIAL)
     Route: 042
     Dates: start: 20230322, end: 20230322
  2. CYCLOPHOSPHAMIDE [Suspect]
     Active Substance: CYCLOPHOSPHAMIDE
     Dosage: 662 MILLIGRAM, DOSAGE INTERVAL: 1 DAY (QD); FORMULATION: VIAL
     Route: 042
     Dates: start: 20230322, end: 20230322
  3. EPIRUBICIN HYDROCHLORIDE [Suspect]
     Active Substance: EPIRUBICIN HYDROCHLORIDE
     Dosage: 99 MILLIGRAM, DOSAGE INTERVAL: 1 DAY (QD); FORMULATION: VIAL; ROUTE OF ADMINISTRATION: OTHER INJECTI
     Dates: start: 20230322, end: 20230322

REACTIONS (1)
  - Leukopenia [Recovered/Resolved]

NARRATIVE: CASE EVENT DATE: 20230405
